FAERS Safety Report 8921535 (Version 2)
Quarter: 2013Q1

REPORT INFORMATION
  Report Type: Spontaneous
  Country: US (occurrence: US)
  Receive Date: 20121121
  Receipt Date: 20130211
  Transmission Date: 20140127
  Serious: Yes (Other)
  Sender: FDA-Public Use
  Company Number: US-JNJFOC-20121108898

PATIENT
  Sex: Female
  Weight: 68.49 kg

DRUGS (13)
  1. XARELTO [Suspect]
     Indication: THROMBOSIS
     Route: 048
     Dates: start: 20120702
  2. COUMADIN [Suspect]
     Indication: PRODUCT USED FOR UNKNOWN INDICATION
     Route: 065
  3. DILTIAZEM HCL [Concomitant]
     Indication: HYPERTENSION
     Route: 048
  4. TORSEMIDE [Concomitant]
     Indication: FLUID RETENTION
     Route: 048
  5. MICARDIS [Concomitant]
     Indication: HYPERTENSION
     Route: 048
  6. URSODIOL [Concomitant]
     Indication: LIVER DISORDER
     Route: 048
  7. ZETIA [Concomitant]
     Indication: HYPERCHOLESTEROLAEMIA
     Route: 048
  8. ALPHAGAN [Concomitant]
     Indication: GLAUCOMA
     Route: 047
  9. ALL OTHER THERAPEUTIC PRODUCTS [Concomitant]
     Indication: GLAUCOMA
     Route: 047
  10. VITAMIN D [Concomitant]
     Indication: VITAMIN SUPPLEMENTATION
     Route: 048
  11. FORTEO [Concomitant]
     Indication: OSTEOPOROSIS
     Route: 058
     Dates: start: 2011
  12. ALL OTHER THERAPEUTIC PRODUCTS [Concomitant]
     Indication: DRY EYE
     Route: 047
     Dates: start: 2011
  13. ERYTHROMYCIN [Concomitant]
     Indication: EYE DISORDER
     Route: 048
     Dates: start: 2011

REACTIONS (2)
  - Blood potassium decreased [Not Recovered/Not Resolved]
  - Feeling cold [Recovered/Resolved]
